FAERS Safety Report 6521662-9 (Version None)
Quarter: 2009Q4

REPORT INFORMATION
  Report Type: 
  Country: None (occurrence: None)
  Receive Date: 20091230
  Receipt Date: 20091218
  Transmission Date: 20100525
  Serious: Yes (Other)
  Sender: FDA-Public Use
  Company Number: PHHY2009FR57484

PATIENT
  Age: 77 Year
  Sex: Male
  Weight: 77 kg

DRUGS (2)
  1. TAREG [Suspect]
     Indication: HYPERTENSION
     Dosage: 80
  2. KARDEGIC [Suspect]
     Dosage: 75

REACTIONS (7)
  - BENIGN PROSTATIC HYPERPLASIA [None]
  - BLOOD IMMUNOGLOBULIN E INCREASED [None]
  - BLOOD PRESSURE INCREASED [None]
  - BLOOD PRESSURE SYSTOLIC [None]
  - LIP SWELLING [None]
  - PRURITUS GENERALISED [None]
  - URTICARIA [None]
